FAERS Safety Report 12578251 (Version 2)
Quarter: 2016Q3

REPORT INFORMATION
  Report Type: Spontaneous
  Country: US (occurrence: US)
  Receive Date: 20160721
  Receipt Date: 20160826
  Transmission Date: 20161109
  Serious: Yes (Other)
  Sender: FDA-Public Use
  Company Number: US-TEVA-673742USA

PATIENT
  Age: 29 Year
  Sex: Male

DRUGS (6)
  1. ATENOLOL. [Concomitant]
     Active Substance: ATENOLOL
  2. TIZANIDINE. [Concomitant]
     Active Substance: TIZANIDINE
  3. TROKENDI [Concomitant]
     Active Substance: TOPIRAMATE
  4. ZECUITY [Suspect]
     Active Substance: SUMATRIPTAN SUCCINATE
     Indication: HEADACHE
     Route: 062
  5. ESCITALOPRAM [Concomitant]
     Active Substance: ESCITALOPRAM OXALATE
  6. DEPLIN [Concomitant]
     Active Substance: LEVOMEFOLATE CALCIUM

REACTIONS (18)
  - Application site paraesthesia [Recovered/Resolved]
  - Application site erosion [Recovered/Resolved]
  - Application site exfoliation [Unknown]
  - Application site discolouration [Recovered/Resolved]
  - Drug ineffective [Unknown]
  - Application site erythema [Recovered/Resolved]
  - Application site pruritus [Recovered/Resolved]
  - Application site scar [Recovered/Resolved]
  - Application site pain [Recovered/Resolved]
  - Circumstance or information capable of leading to medication error [Unknown]
  - Application site warmth [Recovered/Resolved]
  - Wrong technique in product usage process [Unknown]
  - Application site dryness [Recovering/Resolving]
  - Application site scab [Recovered/Resolved]
  - Application site discomfort [Recovered/Resolved]
  - Incorrect drug administration duration [Unknown]
  - Application site burn [Recovered/Resolved]
  - Application site irritation [Recovered/Resolved]

NARRATIVE: CASE EVENT DATE: 201604
